FAERS Safety Report 7708879 (Version 3)
Quarter: 2012Q4

REPORT INFORMATION
  Report Type: 
  Country: US (occurrence: US)
  Receive Date: 20101214
  Receipt Date: 20121114
  Transmission Date: 20130627
  Serious: No
  Sender: FDA-Public Use
  Company Number: US-ASTRAZENECA-2010SE20970

PATIENT
  Age: 59 Year
  Sex: Male

DRUGS (4)
  1. CRESTOR [Suspect]
     Route: 048
  2. RHINOCORT AQUA [Suspect]
     Route: 045
  3. NEXIUM [Suspect]
     Route: 048
  4. SEROQUEL XR [Suspect]
     Route: 048

REACTIONS (5)
  - Adverse reaction [Unknown]
  - Dyspnoea [Unknown]
  - Muscle enzyme increased [Unknown]
  - Myalgia [Unknown]
  - Drug dose omission [Unknown]
